FAERS Safety Report 20081284 (Version 1)
Quarter: 2021Q4

REPORT INFORMATION
  Report Type: Spontaneous
  Country: FR (occurrence: FR)
  Receive Date: 20211117
  Receipt Date: 20211117
  Transmission Date: 20220303
  Serious: Yes (Other)
  Sender: FDA-Public Use
  Company Number: None

PATIENT
  Age: 69 Year
  Sex: Female

DRUGS (4)
  1. OFLOXACIN [Suspect]
     Active Substance: OFLOXACIN
     Indication: Osteitis
     Dosage: UNKNOWN
     Route: 048
     Dates: start: 20211007, end: 20211011
  2. ACUPAN [Suspect]
     Active Substance: NEFOPAM HYDROCHLORIDE
     Indication: Pain
     Dosage: UNKNOWN,UNIT DOSE:20MILLIGRAM
     Route: 048
     Dates: start: 202109
  3. RIFAMPIN [Interacting]
     Active Substance: RIFAMPIN
     Indication: Osteitis
     Dosage: UNKNOWN
     Route: 048
     Dates: start: 20211007, end: 20211011
  4. VALPROATE SODIUM [Interacting]
     Active Substance: VALPROATE SODIUM
     Indication: Epilepsy
     Dosage: 1GRAM,THERAPY START DATE :ASKU
     Route: 048

REACTIONS (2)
  - Epilepsy [Recovering/Resolving]
  - Drug interaction [Unknown]

NARRATIVE: CASE EVENT DATE: 20211009
